FAERS Safety Report 13234586 (Version 2)
Quarter: 2017Q1

REPORT INFORMATION
  Report Type: Spontaneous
  Country: US (occurrence: US)
  Receive Date: 20170215
  Receipt Date: 20170316
  Transmission Date: 20170428
  Serious: No
  Sender: FDA-Public Use
  Company Number: US-PFIZER INC-2017065945

PATIENT
  Age: 74 Year
  Sex: Female
  Weight: 88 kg

DRUGS (8)
  1. FOSAMAX [Suspect]
     Active Substance: ALENDRONATE SODIUM
     Indication: NASAL CONGESTION
     Dosage: UNK
     Route: 045
  2. DELSYM [Suspect]
     Active Substance: DEXTROMETHORPHAN
     Indication: NASAL CONGESTION
     Dosage: UNK
     Route: 048
  3. ADVIL SINUS CONGESTION AND PAIN [Suspect]
     Active Substance: IBUPROFEN\PHENYLEPHRINE HYDROCHLORIDE
     Indication: COUGH
  4. DELSYM [Suspect]
     Active Substance: DEXTROMETHORPHAN
     Indication: COUGH
  5. MUCINEX [Suspect]
     Active Substance: GUAIFENESIN
     Indication: NASAL CONGESTION
     Dosage: UNK
  6. FOSAMAX [Suspect]
     Active Substance: ALENDRONATE SODIUM
     Indication: COUGH
  7. ADVIL SINUS CONGESTION AND PAIN [Suspect]
     Active Substance: IBUPROFEN\PHENYLEPHRINE HYDROCHLORIDE
     Indication: NASAL CONGESTION
     Dosage: UNK, EVERY 4 HRS
     Route: 048
  8. MUCINEX [Suspect]
     Active Substance: GUAIFENESIN
     Indication: COUGH

REACTIONS (1)
  - Drug ineffective [Unknown]
